FAERS Safety Report 16453676 (Version 1)
Quarter: 2019Q2

REPORT INFORMATION
  Report Type: Report from Study
  Country: US (occurrence: US)
  Receive Date: 20190619
  Receipt Date: 20190619
  Transmission Date: 20190711
  Serious: Yes (Hospitalization)
  Sender: FDA-Public Use
  Company Number: US-ACTELION-A-NJ2019-190899

PATIENT
  Age: 57 Year
  Sex: Female
  Weight: 108.84 kg

DRUGS (4)
  1. SILDENAFIL CITRATE. [Concomitant]
     Active Substance: SILDENAFIL CITRATE
     Dosage: UNK, TID
  2. UPTRAVI [Suspect]
     Active Substance: SELEXIPAG
     Dosage: 400 MCG, BID
     Route: 048
  3. UPTRAVI [Suspect]
     Active Substance: SELEXIPAG
     Indication: PULMONARY ARTERIAL HYPERTENSION
     Dosage: 200 MCG, BID
     Route: 048
  4. ADEMPAS [Concomitant]
     Active Substance: RIOCIGUAT

REACTIONS (14)
  - Pain [Unknown]
  - Nausea [Recovered/Resolved]
  - Constipation [Unknown]
  - Diarrhoea [Unknown]
  - Dyspnoea [Unknown]
  - Therapy non-responder [Unknown]
  - Oedema peripheral [Recovering/Resolving]
  - Myalgia [Recovered/Resolved]
  - Abdominal distension [Unknown]
  - Gastrooesophageal reflux disease [Unknown]
  - Arthralgia [Not Recovered/Not Resolved]
  - Pyrexia [Unknown]
  - Headache [Recovering/Resolving]
  - Gait inability [Recovered/Resolved]

NARRATIVE: CASE EVENT DATE: 20190531
